FAERS Safety Report 20324386 (Version 3)
Quarter: 2022Q1

REPORT INFORMATION
  Report Type: Report from Study
  Country: BR (occurrence: BR)
  Receive Date: 20220111
  Receipt Date: 20220218
  Transmission Date: 20220423
  Serious: Yes (Life-Threatening)
  Sender: FDA-Public Use
  Company Number: BR-JNJFOC-20220111357

PATIENT
  Age: 73 Year
  Sex: Male
  Weight: 63 kg

DRUGS (5)
  1. PLACEBO [Suspect]
     Active Substance: UNSPECIFIED INGREDIENT
     Indication: Prostate cancer
     Dosage: THE MOST RECENT DOSE ON 01-DEC-2021; MED KIT 246-3238; 60MG, 4 CP/DAY
     Route: 048
     Dates: start: 20211103
  2. ZOLADEX [Suspect]
     Active Substance: GOSERELIN ACETATE
     Indication: Antiandrogen therapy
     Dosage: THE MOST RECENT DOSE ON 08-SEP-2021
     Dates: start: 20210616
  3. HYDROCHLOROTHIAZIDE [Concomitant]
     Active Substance: HYDROCHLOROTHIAZIDE
     Indication: Hypertension
     Route: 048
     Dates: start: 2000
  4. AMLODIPINE [Concomitant]
     Active Substance: AMLODIPINE BESYLATE
     Indication: Hypertension
     Route: 048
     Dates: start: 2000
  5. LOSARTAN [Concomitant]
     Active Substance: LOSARTAN
     Indication: Hypertension
     Route: 048
     Dates: start: 2000

REACTIONS (2)
  - Pulmonary embolism [Recovering/Resolving]
  - Pneumonia [Recovering/Resolving]

NARRATIVE: CASE EVENT DATE: 20220104
